FAERS Safety Report 24281235 (Version 1)
Quarter: 2024Q3

REPORT INFORMATION
  Report Type: Report from Study
  Country: CO (occurrence: CO)
  Receive Date: 20240904
  Receipt Date: 20240904
  Transmission Date: 20241017
  Serious: Yes (Hospitalization, Other)
  Sender: UCB
  Company Number: CO-UCBSA-2024044928

PATIENT
  Age: 11 Year
  Sex: Female

DRUGS (3)
  1. LACOSAMIDE [Suspect]
     Active Substance: LACOSAMIDE
     Indication: Epilepsy
     Dosage: 10 MILLILITER, 2X/DAY (BID)
     Route: 048
     Dates: start: 20210723
  2. OXCARBAZEPINE [Concomitant]
     Active Substance: OXCARBAZEPINE
     Indication: Product used for unknown indication
     Dosage: UNK
  3. LEVETIRACETAM [Concomitant]
     Active Substance: LEVETIRACETAM
     Indication: Product used for unknown indication
     Dosage: UNK

REACTIONS (4)
  - Limb operation [Recovered/Resolved]
  - Pneumonia [Not Recovered/Not Resolved]
  - Electrolyte imbalance [Unknown]
  - Gastrostomy [Unknown]

NARRATIVE: CASE EVENT DATE: 20240618
